FAERS Safety Report 8189849-X (Version None)
Quarter: 2012Q1

REPORT INFORMATION
  Report Type: 
  Country: None (occurrence: None)
  Receive Date: 20120307
  Receipt Date: 20111204
  Transmission Date: 20120608
  Serious: No
  Sender: FDA-Public Use
  Company Number: US-GLAXOSMITHKLINE-A0957375A

PATIENT
  Sex: Female

DRUGS (4)
  1. ZETIA [Concomitant]
  2. UNKNOWN [Concomitant]
  3. REQUIP [Suspect]
     Indication: PARKINSONISM
  4. ZOLOFT [Concomitant]

REACTIONS (1)
  - DRUG INEFFECTIVE [None]
